FAERS Safety Report 9672503 (Version 1)
Quarter: 2013Q4

REPORT INFORMATION
  Report Type: Spontaneous
  Country: CA (occurrence: CA)
  Receive Date: 20131106
  Receipt Date: 20131106
  Transmission Date: 20140711
  Serious: Yes (Other)
  Sender: FDA-Public Use
  Company Number: CA-ALLERGAN-1316977US

PATIENT
  Age: 52 Year
  Sex: Male

DRUGS (2)
  1. BOTOX [Suspect]
     Indication: NEUROGENIC BLADDER
     Dosage: 300 UNITS, SINGLE
     Dates: start: 200607, end: 200607
  2. XYLOCAINE [Concomitant]

REACTIONS (2)
  - Autonomic dysreflexia [Recovered/Resolved]
  - Hypertension [Recovered/Resolved]
